FAERS Safety Report 13848418 (Version 2)
Quarter: 2020Q3

REPORT INFORMATION
  Report Type: Spontaneous
  Country: US (occurrence: US)
  Receive Date: 20170809
  Receipt Date: 20200807
  Transmission Date: 20201102
  Serious: No
  Sender: FDA-Public Use
  Company Number: US-PURDUE-USA-2017-0139946

PATIENT
  Age: 56 Year
  Sex: Male

DRUGS (5)
  1. BUTRANS [Suspect]
     Active Substance: BUPRENORPHINE
     Dosage: 10 MCG/HR, WEEKLY
     Route: 062
  2. BUTRANS [Suspect]
     Active Substance: BUPRENORPHINE
     Dosage: 7.5 MCG/HR, WEEKLY
     Route: 062
  3. BUTRANS [Suspect]
     Active Substance: BUPRENORPHINE
     Dosage: 5 MCG/HR, WEEKLY
     Route: 062
  4. BUTRANS [Suspect]
     Active Substance: BUPRENORPHINE
     Dosage: 15 MCG/KG, WEEKLY
     Route: 062
     Dates: start: 202004
  5. BUTRANS [Suspect]
     Active Substance: BUPRENORPHINE
     Indication: PAIN MANAGEMENT
     Dosage: 15 MCG/HR, WEEKLY
     Route: 062
     Dates: start: 201706

REACTIONS (3)
  - Product adhesion issue [Unknown]
  - Inadequate analgesia [Not Recovered/Not Resolved]
  - Drug ineffective [Unknown]

NARRATIVE: CASE EVENT DATE: 202004
